FAERS Safety Report 5255955-2 (Version None)
Quarter: 2007Q1

REPORT INFORMATION
  Report Type: 
  Country: None (occurrence: None)
  Receive Date: 20070306
  Receipt Date: 20070220
  Transmission Date: 20070707
  Serious: Yes (Other)
  Sender: FDA-Public Use
  Company Number: US-ELI_LILLY_AND_COMPANY-US200702005075

PATIENT
  Age: 81 Year
  Sex: Female

DRUGS (5)
  1. FORTEO [Suspect]
     Indication: OSTEOPOROSIS
     Dates: start: 20050201
  2. AMARYL [Concomitant]
  3. SYNTHROID [Concomitant]
  4. RENAL [Concomitant]
  5. RENAGEL [Concomitant]

REACTIONS (6)
  - ARTERIOVENOUS FISTULA THROMBOSIS [None]
  - BLOOD TRIGLYCERIDES INCREASED [None]
  - DERMATITIS CONTACT [None]
  - DIABETES MELLITUS [None]
  - PNEUMONIA [None]
  - RENAL FAILURE CHRONIC [None]
